FAERS Safety Report 21113302 (Version 1)
Quarter: 2022Q3

REPORT INFORMATION
  Report Type: Spontaneous
  Country: US (occurrence: None)
  Receive Date: 20220721
  Receipt Date: 20220721
  Transmission Date: 20221026
  Serious: Yes (Other)
  Sender: FDA-Public Use
  Company Number: None

PATIENT
  Age: 35 Year
  Sex: Female
  Weight: 74.84 kg

DRUGS (2)
  1. DEVICE\NICOTINE [Suspect]
     Active Substance: DEVICE\NICOTINE
     Dosage: FREQUENCY : DAILY;?
  2. TETRAHYDROCANNABINOL UNSPECIFIED\HERBALS [Suspect]
     Active Substance: HERBALS\TETRAHYDROCANNABINOL UNSPECIFIED

REACTIONS (3)
  - Pregnancy [None]
  - Maternal exposure during pregnancy [None]
  - Abortion spontaneous [None]

NARRATIVE: CASE EVENT DATE: 20220121
